FAERS Safety Report 14548544 (Version 1)
Quarter: 2018Q1

REPORT INFORMATION
  Report Type: Spontaneous
  Country: US (occurrence: US)
  Receive Date: 20180219
  Receipt Date: 20180219
  Transmission Date: 20180509
  Serious: No
  Sender: FDA-Public Use
  Company Number: US-ROCHE-1905558

PATIENT
  Sex: Female

DRUGS (1)
  1. XOLAIR [Suspect]
     Active Substance: OMALIZUMAB
     Indication: IDIOPATHIC URTICARIA
     Dosage: STRENGTH:150 MG, ONGOING: YES
     Route: 058
     Dates: start: 20160229

REACTIONS (2)
  - Dyspnoea [Unknown]
  - Dry skin [Unknown]
